FAERS Safety Report 7895442-6 (Version None)
Quarter: 2011Q4

REPORT INFORMATION
  Report Type: 
  Country: None (occurrence: None)
  Receive Date: 20111104
  Receipt Date: 20111104
  Transmission Date: 20120403
  Serious: Yes (Other)
  Sender: FDA-Public Use
  Company Number: None

PATIENT
  Age: 76 Year
  Sex: Female
  Weight: 81.6475 kg

DRUGS (3)
  1. WARFARIN SODIUM [Suspect]
     Indication: THYROIDITIS
     Dosage: 1 EA 24 HR
     Dates: start: 20080421
  2. WARFARIN SODIUM [Suspect]
     Indication: AUTOIMMUNE THYROIDITIS
     Dosage: 1 EA 24 HR
     Dates: start: 20080421
  3. DILTIAZEM [Suspect]
     Indication: ATRIAL FIBRILLATION
     Dosage: 1 EA 24 HR
     Dates: start: 20100420, end: 20110926

REACTIONS (6)
  - RASH [None]
  - NO THERAPEUTIC RESPONSE [None]
  - ERUCTATION [None]
  - INTESTINAL ULCER [None]
  - FLATULENCE [None]
  - SKIN ULCER [None]
